FAERS Safety Report 24383575 (Version 1)
Quarter: 2024Q4

REPORT INFORMATION
  Report Type: Report from Study
  Country: US (occurrence: US)
  Receive Date: 20241001
  Receipt Date: 20241001
  Transmission Date: 20250114
  Serious: Yes (Other)
  Sender: INCYTE
  Company Number: US-INCYTE CORPORATION-2024IN010186

PATIENT

DRUGS (2)
  1. JAKAFI [Suspect]
     Active Substance: RUXOLITINIB
     Dosage: UNK
     Route: 065
     Dates: end: 2022
  2. HYDROXYUREA [Suspect]
     Active Substance: HYDROXYUREA
     Dosage: UNK
     Route: 065

REACTIONS (4)
  - Cataract [Unknown]
  - Laboratory test abnormal [Unknown]
  - Weight increased [Unknown]
  - Drug ineffective [Unknown]
